FAERS Safety Report 7619664-4 (Version None)
Quarter: 2011Q3

REPORT INFORMATION
  Report Type: 
  Country: None (occurrence: None)
  Receive Date: 20110719
  Receipt Date: 20110708
  Transmission Date: 20111222
  Serious: Yes (Other)
  Sender: FDA-Public Use
  Company Number: US-RANBAXY-2011US-46054

PATIENT
  Age: 13 Month
  Sex: Male

DRUGS (2)
  1. ACETAMINOPHEN [Suspect]
     Indication: PRODUCT USED FOR UNKNOWN INDICATION
     Dosage: UNK, UNK
     Route: 048
  2. GLIPIZIDE [Suspect]
     Indication: PRODUCT USED FOR UNKNOWN INDICATION
     Dosage: UNK
     Route: 048

REACTIONS (5)
  - HYPOGLYCAEMIA [None]
  - WRONG DRUG ADMINISTERED [None]
  - CONVULSION [None]
  - MEDICATION ERROR [None]
  - ACCIDENTAL OVERDOSE [None]
